FAERS Safety Report 9472746 (Version 1)
Quarter: 2013Q3

REPORT INFORMATION
  Report Type: Spontaneous
  Country: US (occurrence: US)
  Receive Date: 20130823
  Receipt Date: 20130823
  Transmission Date: 20140515
  Serious: No
  Sender: FDA-Public Use
  Company Number: US-PFIZER INC-2013244024

PATIENT
  Age: 57 Year
  Sex: Male
  Weight: 90.7 kg

DRUGS (2)
  1. LYRICA [Suspect]
     Indication: PAIN
     Dosage: 150 MG, 3X/DAY
     Route: 048
     Dates: start: 2008, end: 201308
  2. LYRICA [Suspect]
     Indication: NERVE INJURY

REACTIONS (4)
  - Nausea [Unknown]
  - Nasopharyngitis [Unknown]
  - Influenza [Unknown]
  - Product odour abnormal [Unknown]
